FAERS Safety Report 7419789-2 (Version None)
Quarter: 2011Q2

REPORT INFORMATION
  Report Type: 
  Country: None (occurrence: None)
  Receive Date: 20110418
  Receipt Date: 20110405
  Transmission Date: 20111010
  Serious: Yes (Hospitalization)
  Sender: FDA-Public Use
  Company Number: US-JNJFOC-20100300612

PATIENT
  Sex: Male
  Weight: 54.89 kg

DRUGS (12)
  1. IRON [Concomitant]
  2. MULTI-VITAMINS [Concomitant]
  3. ACIDOPHILUS [Concomitant]
  4. INFLIXIMAB [Suspect]
     Route: 042
  5. INFLIXIMAB [Suspect]
     Indication: CROHN'S DISEASE
     Dosage: STARTED INFLIXIMAB IN THE FALL OF 2008
     Route: 042
  6. PREDNISONE [Concomitant]
  7. CALCIUM [Concomitant]
  8. MERCAPTOPURINE [Concomitant]
  9. PRILOSEC [Concomitant]
  10. INFLIXIMAB [Suspect]
     Route: 042
  11. COLAZAL [Concomitant]
     Dosage: WEANED DOWN FROM TID
  12. 5-AMINOSALICYLIC ACID [Concomitant]
     Route: 048

REACTIONS (2)
  - CROHN'S DISEASE [None]
  - PERIRECTAL ABSCESS [None]
